FAERS Safety Report 9487231 (Version 2)
Quarter: 2013Q3

REPORT INFORMATION
  Report Type: Report from Study
  Country: IL (occurrence: IL)
  Receive Date: 20130829
  Receipt Date: 20130829
  Transmission Date: 20140515
  Serious: Yes (Hospitalization, Other)
  Sender: FDA-Public Use
  Company Number: IL-BAYER-2013-093264

PATIENT
  Age: 34 Year
  Sex: Female

DRUGS (2)
  1. MIRENA [Suspect]
     Dosage: 20 ?G, CONT
     Route: 015
     Dates: start: 20130724, end: 20130730
  2. CONCERTA [Concomitant]
     Dosage: 18 MG, QD
     Route: 048

REACTIONS (8)
  - Uterine perforation [None]
  - Dizziness [Recovered/Resolved]
  - Abdominal pain lower [Recovered/Resolved]
  - Dizziness [Recovered/Resolved]
  - Vaginal discharge [None]
  - Abdominal tenderness [None]
  - Subcutaneous haematoma [None]
  - Pelvic inflammatory disease [None]
